FAERS Safety Report 13412082 (Version 2)
Quarter: 2017Q4

REPORT INFORMATION
  Report Type: Spontaneous
  Country: US (occurrence: US)
  Receive Date: 20170406
  Receipt Date: 20171123
  Transmission Date: 20180320
  Serious: No
  Sender: FDA-Public Use
  Company Number: US-JNJFOC-20170314118

PATIENT
  Sex: Male

DRUGS (2)
  1. RISPERDAL [Suspect]
     Active Substance: RISPERIDONE
     Indication: SCHIZOPHRENIA
     Dosage: VARYING DOSES OF 03 MG AND 04 MG.
     Route: 048
     Dates: start: 20080624, end: 20150930
  2. RISPERIDONE. [Suspect]
     Active Substance: RISPERIDONE
     Indication: SCHIZOPHRENIA
     Dosage: VARYING DOSES OF 03 MG AND 04 MG.
     Route: 048
     Dates: start: 20080624, end: 20150930

REACTIONS (2)
  - Gynaecomastia [Unknown]
  - Emotional disorder [Unknown]
